FAERS Safety Report 7216608-4 (Version None)
Quarter: 2011Q1

REPORT INFORMATION
  Report Type: 
  Country: None (occurrence: None)
  Receive Date: 20110110
  Receipt Date: 20090416
  Transmission Date: 20110831
  Serious: No
  Sender: FDA-Public Use
  Company Number: US-BIOGENIDEC-2009BI011964

PATIENT
  Sex: Male

DRUGS (1)
  1. TYSABRI [Suspect]
     Indication: MULTIPLE SCLEROSIS
     Route: 042
     Dates: start: 20090205, end: 20100511

REACTIONS (4)
  - ARTHRALGIA [None]
  - PSORIASIS [None]
  - SEXUAL DYSFUNCTION [None]
  - IRRITABILITY [None]
